FAERS Safety Report 13737599 (Version 1)
Quarter: 2017Q3

REPORT INFORMATION
  Report Type: Spontaneous
  Country: US (occurrence: US)
  Receive Date: 20170710
  Receipt Date: 20170710
  Transmission Date: 20171127
  Serious: Yes (Other)
  Sender: FDA-Public Use
  Company Number: US-SAOL THERAPEUTICS-2016SAO00970

PATIENT
  Age: 66 Year
  Sex: Female
  Weight: 68.27 kg

DRUGS (28)
  1. ZOLPIDEM TARTRATE. [Concomitant]
     Active Substance: ZOLPIDEM TARTRATE
  2. TIZANIDINE HYDROCHLORIDE. [Concomitant]
     Active Substance: TIZANIDINE HYDROCHLORIDE
  3. DILAUDID [Suspect]
     Active Substance: HYDROMORPHONE HYDROCHLORIDE
     Dosage: 16 MG, \DAY
     Route: 037
  4. GABAPENTIN. [Concomitant]
     Active Substance: GABAPENTIN
  5. COMPOUNDED BACLOFEN [Suspect]
     Active Substance: BACLOFEN
     Dosage: 5028.5 ?G, \DAY
     Dates: start: 20161021
  6. METOPROLOL. [Concomitant]
     Active Substance: METOPROLOL
  7. GLIPIZIDE. [Concomitant]
     Active Substance: GLIPIZIDE
  8. CLONIDINE HYDROCHLORIDE. [Concomitant]
     Active Substance: CLONIDINE HYDROCHLORIDE
  9. COMPOUNDED BACLOFEN [Suspect]
     Active Substance: BACLOFEN
     Dosage: 5076.8 ?G, \DAY
     Dates: start: 20160402, end: 2016
  10. DILAUDID [Suspect]
     Active Substance: HYDROMORPHONE HYDROCHLORIDE
     Dosage: 51.982 MG, \DAY
     Route: 037
     Dates: start: 20160309
  11. DILAUDID [Suspect]
     Active Substance: HYDROMORPHONE HYDROCHLORIDE
     Dosage: 57.114 MG, \DAY
     Route: 037
     Dates: start: 20160402, end: 2016
  12. FENTANYL. [Suspect]
     Active Substance: FENTANYL
     Dosage: 62.9 ?G, \DAY
     Route: 037
     Dates: start: 2015
  13. FENTANYL. [Suspect]
     Active Substance: FENTANYL
     Dosage: 5076.8 ?G, \DAY
     Route: 037
  14. COMPOUNDED BACLOFEN [Suspect]
     Active Substance: BACLOFEN
     Indication: PAIN
     Dosage: 5593.4 ?G, \DAY
     Route: 037
     Dates: start: 20160812, end: 20161021
  15. DILAUDID [Concomitant]
     Active Substance: HYDROMORPHONE HYDROCHLORIDE
     Dosage: 2 TABLETS, 6X/DAY
     Route: 048
  16. HYRDROCODONE [Concomitant]
     Active Substance: HYDROCODONE
     Dosage: 1 TABLETS, UP TO 4X/DAY
  17. AMLODIPINE BESYLATE. [Concomitant]
     Active Substance: AMLODIPINE BESYLATE
  18. COMPOUNDED BACLOFEN [Suspect]
     Active Substance: BACLOFEN
     Dosage: 5000 ?G, \DAY
  19. COMPOUNDED BACLOFEN [Suspect]
     Active Substance: BACLOFEN
     Dosage: 4620.6 ?G, \DAY
     Route: 037
     Dates: start: 20160309
  20. DILAUDID [Suspect]
     Active Substance: HYDROMORPHONE HYDROCHLORIDE
     Dosage: 56.574 UNK, UNK
     Route: 037
     Dates: start: 20161021
  21. ZANAFLEX [Concomitant]
     Active Substance: TIZANIDINE HYDROCHLORIDE
     Dosage: 1 TABLETS, 3X/DAY
  22. LEVOTHYROXINE SODIUM. [Concomitant]
     Active Substance: LEVOTHYROXINE SODIUM
  23. METFORMIN HYDROCHLORIDE. [Concomitant]
     Active Substance: METFORMIN HYDROCHLORIDE
  24. COMPOUNDED BACLOFEN [Suspect]
     Active Substance: BACLOFEN
     Indication: PAIN
     Dosage: 5076.8 ?G, \DAY
     Dates: start: 20160718, end: 20160812
  25. DILAUDID [Suspect]
     Active Substance: HYDROMORPHONE HYDROCHLORIDE
     Dosage: 57.114 UNK, UNK
     Route: 037
     Dates: start: 20160718, end: 20160812
  26. LOSARTAN POTASSIUM. [Concomitant]
     Active Substance: LOSARTAN POTASSIUM
  27. DILAUDID [Suspect]
     Active Substance: HYDROMORPHONE HYDROCHLORIDE
     Dosage: 62.926 MG, \DAY
     Route: 037
     Dates: start: 20160812, end: 20161021
  28. PANTOPRAZOLE SODIUM. [Concomitant]
     Active Substance: PANTOPRAZOLE SODIUM

REACTIONS (17)
  - Dry mouth [Unknown]
  - Pain [Unknown]
  - Mobility decreased [Unknown]
  - Dizziness [Unknown]
  - Insomnia [Unknown]
  - Fatigue [Unknown]
  - Depressed mood [Unknown]
  - Drug withdrawal syndrome [Unknown]
  - Device damage [Recovered/Resolved]
  - Device infusion issue [Unknown]
  - Drug ineffective for unapproved indication [Unknown]
  - Weight decreased [Unknown]
  - Temperature intolerance [Unknown]
  - Headache [Unknown]
  - Decreased appetite [Unknown]
  - Nausea [Unknown]
  - Somnolence [Unknown]

NARRATIVE: CASE EVENT DATE: 2016
